FAERS Safety Report 5728282-4 (Version None)
Quarter: 2008Q2

REPORT INFORMATION
  Report Type: 
  Country: None (occurrence: None)
  Receive Date: 20080430
  Receipt Date: 20080415
  Transmission Date: 20081010
  Serious: Yes (Congenital Anomaly)
  Sender: FDA-Public Use
  Company Number: 2008S1006476

PATIENT

DRUGS (7)
  1. ONDANSEETRON (ONDANSETRON) [Suspect]
     Indication: VOMITING
     Dosage: 4 MG
     Dates: start: 20080112, end: 20080114
  2. ONDANSEETRON (ONDANSETRON) [Suspect]
     Indication: VOMITING
     Dosage: 4 MG
     Dates: start: 20080114
  3. CYCLIZINE [Concomitant]
  4. FOLIC ACID [Concomitant]
  5. METOCLOPRAMIDE [Concomitant]
  6. PROMETHAZINE [Concomitant]
  7. THIAMINE [Concomitant]

REACTIONS (6)
  - FOETAL GROWTH RETARDATION [None]
  - FOETAL MALFORMATION [None]
  - GASTROSCHISIS [None]
  - HEART DISEASE CONGENITAL [None]
  - MATERNAL DRUGS AFFECTING FOETUS [None]
  - SPINAL DEFORMITY [None]
